FAERS Safety Report 6347020-8 (Version None)
Quarter: 2009Q3

REPORT INFORMATION
  Report Type: 
  Country: None (occurrence: None)
  Receive Date: 20090909
  Receipt Date: 20090909
  Transmission Date: 20100115
  Serious: Yes (Hospitalization)
  Sender: FDA-Public Use
  Company Number: None

PATIENT
  Age: 85 Year
  Sex: Female
  Weight: 57 kg

DRUGS (2)
  1. HYDRALAZINE HCL [Suspect]
     Indication: CARDIAC FAILURE CONGESTIVE
     Dosage: 100MG TWICE A DAY PO
     Route: 048
     Dates: start: 20090521, end: 20090602
  2. HYDRALAZINE HCL [Suspect]
     Indication: HYPERTENSION
     Dosage: 100MG TWICE A DAY PO
     Route: 048
     Dates: start: 20090521, end: 20090602

REACTIONS (7)
  - HAEMORRHAGE [None]
  - LACRIMAL DISORDER [None]
  - PETECHIAE [None]
  - RESPIRATORY FAILURE [None]
  - SYSTEMIC LUPUS ERYTHEMATOSUS [None]
  - VASCULITIS [None]
  - VISUAL ACUITY REDUCED [None]
